FAERS Safety Report 4445190-X (Version None)
Quarter: 2004Q3

REPORT INFORMATION
  Report Type: 
  Country: None (occurrence: None)
  Receive Date: 20040903
  Receipt Date: 20040824
  Transmission Date: 20050211
  Serious: Yes (Death)
  Sender: FDA-Public Use
  Company Number: 2004S1000174

PATIENT
  Age: 37 Year
  Sex: Female
  Weight: 58 kg

DRUGS (3)
  1. CUBICIN [Suspect]
     Indication: ENDOCARDITIS
     Dosage: 350 MG; Q24H; IV
     Route: 042
     Dates: start: 20040701, end: 20040811
  2. VANCOMYCIN [Concomitant]
  3. PRIMAXIN [Concomitant]

REACTIONS (6)
  - CARDIAC VALVE VEGETATION [None]
  - CATHETER RELATED COMPLICATION [None]
  - CEREBRAL HAEMORRHAGE [None]
  - MITRAL VALVE INCOMPETENCE [None]
  - PLEURAL EFFUSION [None]
  - THROMBOCYTOPENIA [None]
